FAERS Safety Report 5199233-9 (Version None)
Quarter: 2007Q1

REPORT INFORMATION
  Report Type: 
  Country: None (occurrence: None)
  Receive Date: 20070104
  Receipt Date: 20061225
  Transmission Date: 20070707
  Serious: Yes (Death, Other)
  Sender: FDA-Public Use
  Company Number: JP-PFIZER INC-2006154112

PATIENT
  Sex: Male
  Weight: 67 kg

DRUGS (6)
  1. GABAPEN [Suspect]
     Indication: EPILEPSY
     Route: 048
  2. ANAFRANIL [Concomitant]
     Route: 048
  3. LUVOX [Concomitant]
     Route: 048
     Dates: start: 20040223
  4. VALERIN [Concomitant]
     Route: 048
  5. RISPERDAL [Concomitant]
     Route: 048
     Dates: start: 20060525
  6. RIVOTRIL [Concomitant]
     Route: 048

REACTIONS (1)
  - CARDIAC FAILURE ACUTE [None]
